FAERS Safety Report 16063761 (Version 1)
Quarter: 2019Q1

REPORT INFORMATION
  Report Type: Spontaneous
  Country: US (occurrence: US)
  Receive Date: 20190312
  Receipt Date: 20190312
  Transmission Date: 20190418
  Serious: No
  Sender: FDA-Public Use
  Company Number: US-PFIZER INC-2019105094

PATIENT
  Age: 74 Year
  Sex: Female

DRUGS (5)
  1. METFORMIN HCL [Suspect]
     Active Substance: METFORMIN HYDROCHLORIDE
     Dosage: UNK
  2. AMOXICILLIN TRIHYDRATE [Suspect]
     Active Substance: AMOXICILLIN
     Dosage: UNK
  3. CIPROFLOXACIN HCL [Suspect]
     Active Substance: CIPROFLOXACIN HYDROCHLORIDE
     Dosage: UNK
  4. ERYTHROMYCIN BASE [Suspect]
     Active Substance: ERYTHROMYCIN
     Dosage: UNK
  5. CODEINE [Suspect]
     Active Substance: CODEINE
     Dosage: UNK

REACTIONS (3)
  - Dyspnoea [Unknown]
  - Wheezing [Unknown]
  - Drug hypersensitivity [Unknown]
